FAERS Safety Report 11074024 (Version 2)
Quarter: 2015Q3

REPORT INFORMATION
  Report Type: Report from Study
  Country: US (occurrence: US)
  Receive Date: 20150429
  Receipt Date: 20150720
  Transmission Date: 20151125
  Serious: Yes (Other)
  Sender: FDA-Public Use
  Company Number: US-AEGERION PHARMACEUTICALS-AEGR000497

PATIENT

DRUGS (3)
  1. JUXTAPID [Suspect]
     Active Substance: LOMITAPIDE MESYLATE
     Dosage: 20 MG, QD
     Route: 048
     Dates: start: 20140319
  2. JUXTAPID [Suspect]
     Active Substance: LOMITAPIDE MESYLATE
     Dosage: 10 MG, QD
     Route: 048
     Dates: start: 20131219
  3. JUXTAPID [Suspect]
     Active Substance: LOMITAPIDE MESYLATE
     Indication: TYPE IIA HYPERLIPIDAEMIA
     Dosage: 5 MG, QD
     Route: 048
     Dates: start: 20130312, end: 20131218

REACTIONS (8)
  - Therapy cessation [Not Recovered/Not Resolved]
  - Diarrhoea [Recovered/Resolved]
  - Blood cholesterol increased [Unknown]
  - Low density lipoprotein increased [Unknown]
  - Treatment noncompliance [Unknown]
  - Liver function test abnormal [Recovered/Resolved]
  - Abdominal pain [Recovered/Resolved]
  - High density lipoprotein decreased [Unknown]

NARRATIVE: CASE EVENT DATE: 201303
